FAERS Safety Report 25337381 (Version 1)
Quarter: 2025Q2

REPORT INFORMATION
  Report Type: Spontaneous
  Country: US (occurrence: None)
  Receive Date: 20250514
  Receipt Date: 20250514
  Transmission Date: 20250717
  Serious: Yes (Life-Threatening)
  Sender: FDA-CTU
  Company Number: None

PATIENT

DRUGS (1)
  1. 2,4-DINITROPHENOL [Suspect]
     Active Substance: 2,4-DINITROPHENOL

REACTIONS (4)
  - Acute respiratory distress syndrome [None]
  - Hyperpyrexia [None]
  - Dyspnoea [None]
  - Suspected product quality issue [None]

NARRATIVE: CASE EVENT DATE: 20250512
